FAERS Safety Report 9984010 (Version 2)
Quarter: 2014Q1

REPORT INFORMATION
  Report Type: Report from Study
  Country: US (occurrence: US)
  Receive Date: 20140307
  Receipt Date: 20140307
  Transmission Date: 20141002
  Serious: No
  Sender: FDA-Public Use
  Company Number: US-ABBVIE-13P-163-1101444-00

PATIENT
  Age: 44 Year
  Sex: Female

DRUGS (4)
  1. HUMIRA [Suspect]
     Indication: CROHN^S DISEASE
     Route: 058
     Dates: start: 20130325
  2. HUMIRA [Suspect]
     Route: 058
     Dates: start: 20130708
  3. ASACOL [Concomitant]
     Indication: CROHN^S DISEASE
  4. DELZICOL [Concomitant]
     Indication: CROHN^S DISEASE

REACTIONS (8)
  - Migraine [Unknown]
  - Injection site pruritus [Not Recovered/Not Resolved]
  - Injection site swelling [Not Recovered/Not Resolved]
  - Injection site erythema [Not Recovered/Not Resolved]
  - Arthralgia [Not Recovered/Not Resolved]
  - Injection site pain [Unknown]
  - Diarrhoea [Unknown]
  - Headache [Unknown]
